FAERS Safety Report 18873986 (Version 2)
Quarter: 2021Q1

REPORT INFORMATION
  Report Type: Spontaneous
  Country: AU (occurrence: AU)
  Receive Date: 20210210
  Receipt Date: 20210226
  Transmission Date: 20210420
  Serious: Yes (Life-Threatening, Other)
  Sender: FDA-Public Use
  Company Number: AU-SUN PHARMACEUTICAL INDUSTRIES LTD-2021R1-279980

PATIENT
  Age: 65 Year
  Sex: Female

DRUGS (4)
  1. BUPRENORFINE [Suspect]
     Active Substance: BUPRENORPHINE
     Dosage: 4 MILLIGRAM
     Route: 060
  2. BUPRENORFINE [Suspect]
     Active Substance: BUPRENORPHINE
     Indication: PRODUCT USED FOR UNKNOWN INDICATION
     Dosage: UNK
     Route: 060
     Dates: start: 201403
  3. BUPRENORFINE [Suspect]
     Active Substance: BUPRENORPHINE
     Dosage: 2 MILLIGRAM
     Route: 060
  4. BUPRENORFINE [Suspect]
     Active Substance: BUPRENORPHINE
     Dosage: UNK
     Route: 060
     Dates: start: 201410

REACTIONS (2)
  - Stress cardiomyopathy [Unknown]
  - Vomiting [Unknown]
